FAERS Safety Report 5890715-0 (Version None)
Quarter: 2008Q3

REPORT INFORMATION
  Report Type: 
  Country: None (occurrence: None)
  Receive Date: 20080922
  Receipt Date: 20080910
  Transmission Date: 20090109
  Serious: Yes (Other)
  Sender: FDA-Public Use
  Company Number: US-AMGEN-US300271

PATIENT
  Sex: Male
  Weight: 70 kg

DRUGS (4)
  1. PROCRIT [Suspect]
     Indication: ANAEMIA
     Route: 065
  2. ARANESP [Suspect]
     Indication: ANAEMIA
     Route: 065
  3. CAMPATH [Concomitant]
  4. RAPAMUNE [Concomitant]

REACTIONS (2)
  - ANAEMIA [None]
  - RETICULOCYTE COUNT DECREASED [None]
